FAERS Safety Report 7461142-X (Version None)
Quarter: 2011Q2

REPORT INFORMATION
  Report Type: 
  Country: None (occurrence: None)
  Receive Date: 20110505
  Receipt Date: 20101021
  Transmission Date: 20111010
  Serious: No
  Sender: FDA-Public Use
  Company Number: US-AMGEN-USASP2010001325

PATIENT
  Age: 36 Year
  Sex: Female

DRUGS (2)
  1. PLAQUENIL [Concomitant]
  2. ENBREL [Suspect]
     Indication: RHEUMATOID ARTHRITIS
     Dosage: UNK
     Dates: start: 20100915

REACTIONS (1)
  - DRUG INEFFECTIVE [None]
